FAERS Safety Report 15979378 (Version 1)
Quarter: 2019Q1

REPORT INFORMATION
  Report Type: Spontaneous
  Country: US (occurrence: US)
  Receive Date: 20190216
  Receipt Date: 20190216
  Transmission Date: 20190418
  Serious: Yes (Disabling, Other)
  Sender: FDA-Public Use
  Company Number: None

PATIENT
  Age: 37 Year
  Sex: Female
  Weight: 68.4 kg

DRUGS (9)
  1. AIMOVIG [Suspect]
     Active Substance: ERENUMAB-AOOE
     Indication: MIGRAINE
     Dosage: ?          OTHER FREQUENCY:ONCE MONTHLY;?
     Route: 030
     Dates: end: 20190210
  2. TRAMADOL. [Concomitant]
     Active Substance: TRAMADOL
  3. LEXAPRO [Concomitant]
     Active Substance: ESCITALOPRAM OXALATE
  4. INDOMETHACIN. [Concomitant]
     Active Substance: INDOMETHACIN
  5. PREDNISONE. [Concomitant]
     Active Substance: PREDNISONE
  6. GABAPENTIN. [Concomitant]
     Active Substance: GABAPENTIN
  7. TRAZODONE [Concomitant]
     Active Substance: TRAZODONE HYDROCHLORIDE
  8. VITAMIN D [Concomitant]
     Active Substance: CHOLECALCIFEROL
  9. BUSPAR [Concomitant]
     Active Substance: BUSPIRONE HYDROCHLORIDE

REACTIONS (6)
  - Fatigue [None]
  - Arthritis reactive [None]
  - Arthralgia [None]
  - Joint swelling [None]
  - Unevaluable event [None]
  - Erythema nodosum [None]

NARRATIVE: CASE EVENT DATE: 20181221
